FAERS Safety Report 4786078-4 (Version None)
Quarter: 2005Q3

REPORT INFORMATION
  Report Type: 
  Country: None (occurrence: None)
  Receive Date: 20050930
  Receipt Date: 20050916
  Transmission Date: 20060218
  Serious: Yes (Hospitalization)
  Sender: FDA-Public Use
  Company Number: GXKR2005FR01569

PATIENT
  Age: 85 Year
  Sex: Male

DRUGS (9)
  1. CARBAMAZEPINE [Suspect]
     Indication: BIPOLAR I DISORDER
  2. CLARITHROMYCIN [Suspect]
     Indication: BRONCHITIS
  3. FLUOXETINE [Suspect]
     Indication: DEPRESSION
  4. VITAMIN K ANTAGONIST (VITAMIN K NOS) [Suspect]
     Indication: ISCHAEMIC CARDIOMYOPATHY
  5. BENZODIAZEPINES (NO INGREDIENTS/SUBSTANCES) [Concomitant]
  6. ACE INHIBITOR NOS (NO INGREDIENTS/SUBSTANCES) [Concomitant]
  7. DIURETICS (NO INGREDIENTS/SUBSTANCES) [Concomitant]
  8. HMG COA REDUCTASE INHIBITORS (NO INGREDIENTS/SUBCUTANCES) [Concomitant]
  9. NITRATES (NITRATES) [Concomitant]

REACTIONS (7)
  - ANTIDEPRESSANT DRUG LEVEL ABOVE THERAPEUTIC [None]
  - ASTERIXIS [None]
  - CYTOLYTIC HEPATITIS [None]
  - DRUG INTERACTION [None]
  - ENCEPHALOPATHY [None]
  - HEPATITIS CHOLESTATIC [None]
  - INTERNATIONAL NORMALISED RATIO INCREASED [None]
